FAERS Safety Report 9797056 (Version 1)
Quarter: 2014Q1

REPORT INFORMATION
  Report Type: Spontaneous
  Country: CL (occurrence: CL)
  Receive Date: 20140105
  Receipt Date: 20140105
  Transmission Date: 20141002
  Serious: Yes (Other)
  Sender: FDA-Public Use
  Company Number: CL-PFIZER INC-2013374687

PATIENT
  Age: 89 Year
  Sex: Male

DRUGS (3)
  1. XALATAN [Suspect]
     Indication: GLAUCOMA
     Dosage: UNK
     Route: 047
     Dates: start: 2003, end: 2012
  2. ISOSORBIDE [Concomitant]
  3. ANTICOAGULANTS [Concomitant]

REACTIONS (1)
  - Prostate cancer [Unknown]
